FAERS Safety Report 5532476-0 (Version None)
Quarter: 2007Q4

REPORT INFORMATION
  Report Type: 
  Country: None (occurrence: None)
  Receive Date: 20071203
  Receipt Date: 20071123
  Transmission Date: 20080405
  Serious: Yes (Disabling)
  Sender: FDA-Public Use
  Company Number: DE-PFIZER INC-2007096722

PATIENT
  Age: 62 Year
  Sex: Female

DRUGS (3)
  1. RIFABUTIN CAPSULE [Suspect]
     Indication: HELICOBACTER INFECTION
     Route: 048
     Dates: start: 20071007, end: 20071016
  2. CLARITHROMYCIN [Concomitant]
     Dates: start: 20071007, end: 20071016
  3. OMEPRAZOLE [Concomitant]
     Dates: start: 20071007, end: 20071016

REACTIONS (15)
  - AGEUSIA [None]
  - ANOSMIA [None]
  - DECREASED ACTIVITY [None]
  - DIARRHOEA [None]
  - DIZZINESS [None]
  - HEADACHE [None]
  - HERPES SIMPLEX [None]
  - HYPOACUSIS [None]
  - NAUSEA [None]
  - ORAL CANDIDIASIS [None]
  - PYREXIA [None]
  - RASH [None]
  - SEBORRHOEIC DERMATITIS [None]
  - SLEEP DISORDER [None]
  - TINNITUS [None]
